FAERS Safety Report 10386099 (Version 1)
Quarter: 2014Q1

REPORT INFORMATION
  Report Type: Spontaneous
  Country: US (occurrence: None)
  Receive Date: 20140306
  Receipt Date: 20140306
  Transmission Date: 20141002
  Serious: Yes (Hospitalization)
  Sender: FDA-Public Use
  Company Number: 163-21880-13082687

PATIENT
  Age: 65 Year
  Sex: Male

DRUGS (7)
  1. REVLIMID [Suspect]
     Indication: PLASMA CELL MYELOMA
     Dosage: 21 IN 21D
     Route: 048
     Dates: start: 20130725
  2. FENTANYL (FENTANYL) [Concomitant]
  3. LASIX (FUROSEMIDE) [Concomitant]
  4. METFORMIN HCL (METFORMIN HYDROCHLORIDE) [Concomitant]
  5. OXYCODONE HCL (OXYCODONE HYDROCHLORIDE) [Concomitant]
  6. POTASSIUM (POTASSIUIM) [Concomitant]
  7. TESTOSTERONE (TESTOSTERONE) [Concomitant]

REACTIONS (5)
  - Vertigo [None]
  - Epistaxis [None]
  - Paraesthesia [None]
  - Pain in extremity [None]
  - Dyspnoea [None]
